FAERS Safety Report 14341924 (Version 1)
Quarter: 2018Q1

REPORT INFORMATION
  Report Type: Report from Study
  Country: IN (occurrence: IN)
  Receive Date: 20180102
  Receipt Date: 20180102
  Transmission Date: 20180509
  Serious: Yes (Hospitalization)
  Sender: FDA-Public Use
  Company Number: PHHY2017IN193194

PATIENT
  Age: 60 Year
  Sex: Male
  Weight: 62 kg

DRUGS (1)
  1. VYMADA [Suspect]
     Active Substance: SACUBITRIL\VALSARTAN
     Indication: CARDIAC FAILURE
     Dosage: 100 MG, QD
     Route: 048
     Dates: start: 201702

REACTIONS (5)
  - Cough [Not Recovered/Not Resolved]
  - Blood glucose decreased [Recovered/Resolved]
  - Hypotension [Recovered/Resolved]
  - Drug prescribing error [Not Recovered/Not Resolved]
  - Wrong technique in product usage process [Not Recovered/Not Resolved]
